FAERS Safety Report 25042577 (Version 3)
Quarter: 2025Q1

REPORT INFORMATION
  Report Type: Spontaneous
  Country: CN (occurrence: CN)
  Receive Date: 20250305
  Receipt Date: 20250328
  Transmission Date: 20250408
  Serious: Yes (Other)
  Sender: IPSEN BIOPHARMACEUTICALS, INC.
  Company Number: CN-IPSEN Group, Research and Development-2025-05055

PATIENT
  Age: 45 Year
  Sex: Female

DRUGS (1)
  1. LANREOTIDE ACETATE [Suspect]
     Active Substance: LANREOTIDE ACETATE
     Indication: Acromegaly
     Route: 065
     Dates: start: 202311, end: 202401

REACTIONS (10)
  - Renal disorder [Unknown]
  - Bradycardia [Unknown]
  - Thyroid mass [Unknown]
  - Anaemia [Unknown]
  - Hyperlipidaemia [Unknown]
  - Hepatic cyst [Unknown]
  - Gallbladder polyp [Unknown]
  - Weight increased [Unknown]
  - Drug ineffective [Unknown]
  - Swelling [Unknown]
